FAERS Safety Report 21642712 (Version 1)
Quarter: 2022Q4

REPORT INFORMATION
  Report Type: Spontaneous
  Country: CA (occurrence: CA)
  Receive Date: 20221125
  Receipt Date: 20221125
  Transmission Date: 20230113
  Serious: Yes (Hospitalization)
  Sender: FDA-Public Use
  Company Number: CA-ABBVIE-4214625

PATIENT
  Age: 60 Year
  Sex: Male

DRUGS (3)
  1. HUMIRA [Suspect]
     Active Substance: ADALIMUMAB
     Indication: Renal failure
     Route: 058
  2. HUMIRA [Suspect]
     Active Substance: ADALIMUMAB
     Indication: Liver sarcoidosis
  3. HUMIRA [Suspect]
     Active Substance: ADALIMUMAB
     Indication: Sarcoidosis of lymph node

REACTIONS (2)
  - Cerebral disorder [Unknown]
  - Off label use [Unknown]
